FAERS Safety Report 23345773 (Version 1)
Quarter: 2023Q4

REPORT INFORMATION
  Report Type: Spontaneous
  Country: US (occurrence: US)
  Receive Date: 20231228
  Receipt Date: 20231228
  Transmission Date: 20240110
  Serious: No
  Sender: FDA-Public Use
  Company Number: US-BAUSCHBL-2023BNL013511

PATIENT
  Sex: Female

DRUGS (2)
  1. DORZOLAMIDE HYDROCHLORIDE AND TIMOLOL MALEATE OPHTHALMIC SOLUTION [Suspect]
     Active Substance: DORZOLAMIDE HYDROCHLORIDE\TIMOLOL MALEATE
     Indication: Glaucoma
     Route: 047
  2. LATANOPROST [Suspect]
     Active Substance: LATANOPROST
     Indication: Glaucoma
     Dosage: ONCE A DAY IN EACH EYE
     Route: 047

REACTIONS (6)
  - Arthritis [Unknown]
  - Product lot number issue [Unknown]
  - Product expiration date issue [Unknown]
  - Product closure removal difficult [Unknown]
  - Product use complaint [Unknown]
  - Product delivery mechanism issue [Unknown]
